FAERS Safety Report 9593803 (Version 3)
Quarter: 2015Q2

REPORT INFORMATION
  Report Type: Report from Study
  Country: US (occurrence: US)
  Receive Date: 20131004
  Receipt Date: 20150401
  Transmission Date: 20150821
  Serious: Yes (Other)
  Sender: FDA-Public Use
  Company Number: US-ALEXION-A201301930

PATIENT

DRUGS (2)
  1. ANESTHESIA [Concomitant]
     Active Substance: UNSPECIFIED INGREDIENT
     Indication: SEIZURE
     Route: 065
  2. SOLIRIS [Suspect]
     Active Substance: ECULIZUMAB
     Indication: PAROXYSMAL NOCTURNAL HAEMOGLOBINURIA
     Dosage: UNK
     Route: 042

REACTIONS (5)
  - Seizure [Recovered/Resolved]
  - Chromaturia [Unknown]
  - Renal transplant failure [Not Recovered/Not Resolved]
  - Haemoglobin decreased [Unknown]
  - Infection [Unknown]

NARRATIVE: CASE EVENT DATE: 201308
